FAERS Safety Report 14101889 (Version 2)
Quarter: 2017Q4

REPORT INFORMATION
  Report Type: Spontaneous
  Country: US (occurrence: US)
  Receive Date: 20171018
  Receipt Date: 20171122
  Transmission Date: 20180321
  Serious: No
  Sender: FDA-Public Use
  Company Number: PHEH2017US032387

PATIENT
  Sex: Female

DRUGS (4)
  1. DUREZOL [Concomitant]
     Active Substance: DIFLUPREDNATE
     Indication: PRODUCT USED FOR UNKNOWN INDICATION
     Route: 065
  2. BESIVANCE [Concomitant]
     Active Substance: BESIFLOXACIN
     Indication: PRODUCT USED FOR UNKNOWN INDICATION
     Route: 065
  3. ILEVRO [Suspect]
     Active Substance: NEPAFENAC
     Indication: PRODUCT USED FOR UNKNOWN INDICATION
     Dosage: 2 GTT, QD
     Route: 047
     Dates: start: 20170930
  4. ILEVRO [Suspect]
     Active Substance: NEPAFENAC
     Dosage: 1 GTT, QD
     Route: 047
     Dates: start: 20170930

REACTIONS (2)
  - Product quality issue [Unknown]
  - Visual impairment [Unknown]
